FAERS Safety Report 5181112-4 (Version None)
Quarter: 2006Q4

REPORT INFORMATION
  Report Type: 
  Country: None (occurrence: None)
  Receive Date: 20061220
  Receipt Date: 20061211
  Transmission Date: 20070319
  Serious: Yes (Other)
  Sender: FDA-Public Use
  Company Number: BR-ROCHE-474914

PATIENT
  Age: 24 Year
  Sex: Female

DRUGS (3)
  1. ROACUTAN [Suspect]
     Indication: ACNE
     Route: 048
     Dates: start: 20060815, end: 20061215
  2. YASMIN [Concomitant]
     Indication: CONTRACEPTION
     Route: 048
  3. GRACIAL [Concomitant]
     Indication: CONTRACEPTION
     Route: 048

REACTIONS (3)
  - DRUG EXPOSURE DURING PREGNANCY [None]
  - NO ADVERSE EFFECT [None]
  - PREGNANCY [None]
